FAERS Safety Report 8777395 (Version 1)
Quarter: 2012Q4

REPORT INFORMATION
  Report Type: 
  Country: CN (occurrence: CN)
  Receive Date: 20120911
  Receipt Date: 20120911
  Transmission Date: 20130627
  Serious: Yes (Hospitalization)
  Sender: FDA-Public Use
  Company Number: CN-ABBOTT-12P-035-0978122-00

PATIENT
  Age: 61 Year
  Sex: Female

DRUGS (2)
  1. VALPROATE SODIUM [Suspect]
     Indication: EPILEPSY
     Dosage: 0.5 gram(s), Every 12 hours
     Route: 048
     Dates: start: 20030101, end: 20111028
  2. VALPROATE SODIUM [Suspect]
     Dosage: Daily
     Route: 048

REACTIONS (3)
  - Poisoning [Recovering/Resolving]
  - Tremor [Recovering/Resolving]
  - Decreased appetite [None]
